FAERS Safety Report 8954542 (Version 1)
Quarter: 2012Q4

REPORT INFORMATION
  Report Type: Report from Study
  Country: JP (occurrence: JP)
  Receive Date: 20121210
  Receipt Date: 20121210
  Transmission Date: 20130627
  Serious: Yes (Hospitalization)
  Sender: FDA-Public Use
  Company Number: JP-MPIJNJ-2012-07587

PATIENT

DRUGS (7)
  1. VELCADE [Suspect]
     Indication: MULTIPLE MYELOMA
     Dosage: 1.3 mg/m2, UNK
     Route: 042
     Dates: start: 20120207, end: 20120316
  2. DEXAMETHASONE [Suspect]
     Indication: MULTIPLE MYELOMA
     Dosage: 20 mg, UNK
     Route: 065
     Dates: start: 20120207, end: 20120217
  3. ISOTONIC SODIUM CHLORIDE SOLUTION [Suspect]
     Indication: PRODUCT USED FOR UNKNOWN INDICATION
     Dosage: 1000 ml, UNK
     Route: 041
     Dates: start: 20120220, end: 20120224
  4. FLAGYL /00012501/ [Concomitant]
     Dosage: 750 mg, UNK
     Route: 048
     Dates: start: 20120225, end: 20120305
  5. VITAMEDIN                          /00274301/ [Concomitant]
     Dosage: UNK
     Dates: start: 20120312
  6. POTASSIUM CHLORIDE [Concomitant]
     Dosage: UNK
     Route: 042
     Dates: start: 20120309, end: 20120311
  7. SOLDEM 1 [Concomitant]
     Dosage: UNK
     Route: 042
     Dates: start: 20120220, end: 20120224

REACTIONS (5)
  - Pancreatitis [Recovered/Resolved]
  - Platelet count decreased [Recovered/Resolved]
  - Amylase increased [Recovered/Resolved]
  - Neuropathy peripheral [Recovering/Resolving]
  - Lipase increased [Recovered/Resolved]
